FAERS Safety Report 7676316-2 (Version None)
Quarter: 2011Q3

REPORT INFORMATION
  Report Type: 
  Country: None (occurrence: None)
  Receive Date: 20110811
  Receipt Date: 20110808
  Transmission Date: 20111222
  Serious: No
  Sender: FDA-Public Use
  Company Number: US-PFIZER INC-2011182958

PATIENT
  Sex: Male

DRUGS (10)
  1. PROCARDIA [Concomitant]
     Dosage: UNK
  2. JANUVIA [Concomitant]
     Indication: DIABETES MELLITUS
     Dosage: UNK
  3. ALDACTONE [Suspect]
     Dosage: 100 MG, 2X/DAY
     Dates: start: 20110806
  4. DIOVAN HCT [Concomitant]
     Dosage: 320 MG, DAILY
  5. LOPRESSOR [Concomitant]
     Dosage: 100 MG, 2X/DAY
  6. METFORMIN [Concomitant]
     Indication: DIABETES MELLITUS
     Dosage: UNK
  7. PLAVIX [Suspect]
     Dosage: UNK
     Dates: end: 20100101
  8. INSULIN [Concomitant]
     Indication: DIABETES MELLITUS
     Dosage: UNK
  9. TICLOPIDINE [Concomitant]
     Indication: HYPERTENSION
     Dosage: UNK
  10. ALDACTONE [Suspect]
     Indication: HYPERTENSION
     Dosage: 100 MG, DAILY
     Dates: start: 20110804

REACTIONS (1)
  - RASH [None]
